FAERS Safety Report 24145806 (Version 1)
Quarter: 2024Q3

REPORT INFORMATION
  Report Type: Spontaneous
  Country: US (occurrence: US)
  Receive Date: 20240729
  Receipt Date: 20240729
  Transmission Date: 20241017
  Serious: No
  Sender: ROCHE
  Company Number: US-ROCHE-3577775

PATIENT
  Age: 45 Year
  Sex: Female

DRUGS (2)
  1. XOLAIR [Suspect]
     Active Substance: OMALIZUMAB
     Indication: Idiopathic urticaria
     Route: 058
     Dates: start: 202303
  2. XOLAIR [Suspect]
     Active Substance: OMALIZUMAB

REACTIONS (5)
  - Device defective [Unknown]
  - Product dose omission issue [Unknown]
  - Wrong technique in device usage process [Unknown]
  - No adverse event [Unknown]
  - Device use error [Unknown]

NARRATIVE: CASE EVENT DATE: 20240602
